FAERS Safety Report 9991760 (Version 1)
Quarter: 2014Q1

REPORT INFORMATION
  Report Type: Spontaneous
  Country: US (occurrence: US)
  Receive Date: 20140310
  Receipt Date: 20140310
  Transmission Date: 20141002
  Serious: Yes (Other)
  Sender: FDA-Public Use
  Company Number: US-BAYER-2014-034593

PATIENT
  Age: 33 Year
  Sex: Female

DRUGS (6)
  1. YAZ [Suspect]
     Dosage: UNK
  2. GIANVI [Suspect]
  3. PRISTIQ [Concomitant]
     Dosage: 50 MG,EVERY WEEK 3RD DAY
     Dates: start: 20120327
  4. HYDROCODONE W/IBUPROFEN [Concomitant]
     Dosage: 7.5 [AS WRITTEN]
     Dates: start: 20120319
  5. CLONAZEPAM [Concomitant]
     Dosage: 0.5 MG, UNK
     Dates: start: 20120426
  6. NORCO [Concomitant]
     Dosage: 7.5 MG-325 MG EVERY 4 HOURS
     Dates: start: 20120610

REACTIONS (1)
  - Deep vein thrombosis [None]
